FAERS Safety Report 18534560 (Version 1)
Quarter: 2020Q4

REPORT INFORMATION
  Report Type: Spontaneous
  Country: US (occurrence: US)
  Receive Date: 20201123
  Receipt Date: 20201123
  Transmission Date: 20210114
  Serious: Yes (Hospitalization)
  Sender: FDA-Public Use
  Company Number: None

PATIENT
  Sex: Female

DRUGS (1)
  1. CAPECITABINE. [Suspect]
     Active Substance: CAPECITABINE
     Dosage: ?          OTHER FREQUENCY:BID 14 DAYS, OFF 7;?
     Route: 048
     Dates: start: 20201121

REACTIONS (6)
  - Atrial fibrillation [None]
  - Nausea [None]
  - Malaise [None]
  - Pneumonia [None]
  - Therapy interrupted [None]
  - Cardiac failure [None]
